FAERS Safety Report 22768910 (Version 8)
Quarter: 2024Q2

REPORT INFORMATION
  Report Type: Report from Study
  Country: CA (occurrence: CA)
  Receive Date: 20230731
  Receipt Date: 20240627
  Transmission Date: 20240716
  Serious: Yes (Other)
  Sender: FDA-Public Use
  Company Number: CA-KOREA IPSEN Pharma-2023-18381

PATIENT
  Age: 76 Year
  Sex: Female
  Weight: 68.6 kg

DRUGS (4)
  1. LANREOTIDE ACETATE [Suspect]
     Active Substance: LANREOTIDE ACETATE
     Indication: Gastroenteropancreatic neuroendocrine tumour disease
     Route: 058
     Dates: start: 20220209
  2. RAMIPRIL [Concomitant]
     Active Substance: RAMIPRIL
  3. IRBESARTAN [Concomitant]
     Active Substance: IRBESARTAN
  4. HYDROCHLOROTHIAZIDE [Concomitant]
     Active Substance: HYDROCHLOROTHIAZIDE

REACTIONS (3)
  - Aortic valve incompetence [Not Recovered/Not Resolved]
  - Bradycardia [Unknown]
  - Hypertension [Not Recovered/Not Resolved]

NARRATIVE: CASE EVENT DATE: 20240104
